FAERS Safety Report 18439825 (Version 2)
Quarter: 2020Q4

REPORT INFORMATION
  Report Type: Other
  Country: CA (occurrence: CA)
  Receive Date: 20201029
  Receipt Date: 20201125
  Transmission Date: 20210114
  Serious: Yes (Life-Threatening, Hospitalization, Other)
  Sender: FDA-Public Use
  Company Number: CA-CELLTRION INC.-2020CA029566

PATIENT

DRUGS (15)
  1. RITUXIMAB (UNKNOWN) [Suspect]
     Active Substance: RITUXIMAB
     Dosage: 375 MG/M2, 2 EVERY 1 WEEK
     Route: 065
  2. BORTEZOMIB. [Suspect]
     Active Substance: BORTEZOMIB
     Indication: THROMBOTIC THROMBOCYTOPENIC PURPURA
     Dosage: 3.1 MILLIGRAM, CYCLICAL
     Route: 042
  3. BORTEZOMIB. [Suspect]
     Active Substance: BORTEZOMIB
     Indication: IMMUNOSUPPRESSANT DRUG THERAPY
     Dosage: 1.3 MG/M2, CYCLICAL
     Route: 042
  4. CYCLOSPORINE. [Suspect]
     Active Substance: CYCLOSPORINE
     Indication: THROMBOTIC THROMBOCYTOPENIC PURPURA
     Dosage: 300 MILLIGRAM, EVERY 1 DAY
     Route: 048
  5. RITUXIMAB (UNKNOWN) [Suspect]
     Active Substance: RITUXIMAB
     Indication: THROMBOTIC THROMBOCYTOPENIC PURPURA
     Dosage: 900 MILLIGRAM, 1 EVERY 1 WEEK
     Route: 042
  6. CYCLOPHOSPHAMIDE. [Suspect]
     Active Substance: CYCLOPHOSPHAMIDE
     Indication: IMMUNOSUPPRESSANT DRUG THERAPY
     Dosage: 2 DOSAGE FORMS
     Route: 042
  7. METHYLPREDNISOLONE SODIUM SUCCINATE. [Suspect]
     Active Substance: METHYLPREDNISOLONE SODIUM SUCCINATE
     Indication: THROMBOTIC THROMBOCYTOPENIC PURPURA
     Dosage: UNK, EVERY 1 DAY
     Route: 065
  8. PROCYTOX [Suspect]
     Active Substance: CYCLOPHOSPHAMIDE
     Indication: THROMBOTIC THROMBOCYTOPENIC PURPURA
     Dosage: 1250 MILLIGRAM, TOTAL
     Route: 042
  9. RITUXIMAB (UNKNOWN) [Suspect]
     Active Substance: RITUXIMAB
     Indication: IMMUNOSUPPRESSANT DRUG THERAPY
     Dosage: UNK
     Route: 065
  10. METHYLPREDNISOLONE. [Suspect]
     Active Substance: METHYLPREDNISOLONE
     Indication: IMMUNOSUPPRESSANT DRUG THERAPY
     Route: 065
  11. ACITRETIN. [Concomitant]
     Active Substance: ACITRETIN
     Indication: PSORIASIS
     Route: 065
  12. CYCLOSPORINE. [Suspect]
     Active Substance: CYCLOSPORINE
     Indication: IMMUNOSUPPRESSANT DRUG THERAPY
     Dosage: UNK
     Route: 065
  13. N-ACETYLCYSTEINE [Suspect]
     Active Substance: ACETYLCYSTEINE
     Indication: THROMBOTIC THROMBOCYTOPENIC PURPURA
     Dosage: 18 GRAM, EVERY 1 DAY
     Route: 042
  14. CICLOSPORIN [Suspect]
     Active Substance: CYCLOSPORINE
     Indication: THROMBOTIC THROMBOCYTOPENIC PURPURA
     Dosage: 300 MG
     Route: 048
  15. N-ACETYLCYSTEINE [Suspect]
     Active Substance: ACETYLCYSTEINE
     Dosage: UNK
     Route: 042

REACTIONS (20)
  - Staphylococcal bacteraemia [Unknown]
  - Candida infection [Unknown]
  - Device related sepsis [Unknown]
  - Vascular device infection [Unknown]
  - Muscular weakness [Unknown]
  - Clostridium difficile infection [Unknown]
  - Brain oedema [Unknown]
  - Hemianopia [Unknown]
  - Staphylococcal sepsis [Unknown]
  - Empyema [Unknown]
  - Enterococcal infection [Unknown]
  - Abdominal abscess [Unknown]
  - Bacteraemia [Unknown]
  - Klebsiella infection [Unknown]
  - Cerebrovascular accident [Unknown]
  - Sepsis [Unknown]
  - Drug ineffective [Unknown]
  - Intentional product use issue [Unknown]
  - Off label use [Unknown]
  - Thrombotic thrombocytopenic purpura [Unknown]
